FAERS Safety Report 5403609-1 (Version None)
Quarter: 2007Q3

REPORT INFORMATION
  Report Type: 
  Country: None (occurrence: None)
  Receive Date: 20070802
  Receipt Date: 20070724
  Transmission Date: 20080115
  Serious: Yes (Other)
  Sender: FDA-Public Use
  Company Number: PHHO2007BR08770

PATIENT
  Age: 69 Year
  Sex: Female

DRUGS (1)
  1. DIOVAN AMLO [Suspect]
     Indication: HYPERTENSION
     Dosage: 160/5MG
     Route: 048
     Dates: start: 20040101, end: 20070523

REACTIONS (2)
  - DIZZINESS [None]
  - HYPOTENSION [None]
